FAERS Safety Report 9898359 (Version 3)
Quarter: 2015Q3

REPORT INFORMATION
  Report Type: Spontaneous
  Country: US (occurrence: US)
  Receive Date: 20140214
  Receipt Date: 20150810
  Transmission Date: 20151125
  Serious: No
  Sender: FDA-Public Use
  Company Number: US-GILEAD-2011-0042722

PATIENT
  Age: 41 Year
  Sex: Female

DRUGS (1)
  1. LETAIRIS [Suspect]
     Active Substance: AMBRISENTAN
     Indication: PRODUCT USED FOR UNKNOWN INDICATION
     Dosage: 5 MG, UNK
     Route: 048
     Dates: start: 20110801, end: 20110920

REACTIONS (13)
  - Extrasystoles [Unknown]
  - Feeling abnormal [Unknown]
  - Palpitations [Unknown]
  - Blister [Unknown]
  - Dry mouth [Unknown]
  - Abdominal pain upper [Unknown]
  - Dysphagia [Unknown]
  - Vomiting [Unknown]
  - Pruritus [Unknown]
  - Rash [Unknown]
  - Swelling face [Unknown]
  - Nasal congestion [Unknown]
  - Dry throat [Unknown]
